FAERS Safety Report 8222843-9 (Version None)
Quarter: 2012Q1

REPORT INFORMATION
  Report Type: 
  Country: None (occurrence: None)
  Receive Date: 20120320
  Receipt Date: 20120305
  Transmission Date: 20120608
  Serious: Yes (Hospitalization)
  Sender: FDA-Public Use
  Company Number: US-ENDO PHARMACEUTICALS INC.-METH20120001

PATIENT
  Sex: Female
  Weight: 105.33 kg

DRUGS (10)
  1. METHYLPREDNISOLONE [Suspect]
     Indication: BRONCHITIS
     Dosage: 4 MG
     Route: 048
     Dates: start: 20120112, end: 20120101
  2. VITAMIN TAB [Concomitant]
     Indication: PRODUCT USED FOR UNKNOWN INDICATION
     Dosage: UNK
     Route: 048
  3. OXYGEN [Concomitant]
     Indication: PRODUCT USED FOR UNKNOWN INDICATION
     Dosage: UNK
  4. MEDROL [Suspect]
     Indication: BRONCHITIS
     Dosage: UNK
     Dates: start: 20120110, end: 20120110
  5. ALBUTEROL [Concomitant]
     Indication: BRONCHITIS
     Dosage: UNK
  6. ASPIRIN [Concomitant]
     Indication: PRODUCT USED FOR UNKNOWN INDICATION
     Dosage: 81 MG
     Route: 048
  7. ZITHROMAX [Concomitant]
     Indication: BRONCHITIS
     Dosage: UNK
     Dates: start: 20120110
  8. CELESTAMINE TAB [Concomitant]
     Indication: DIARRHOEA
  9. ZANTAC [Concomitant]
     Indication: ABDOMINAL DISCOMFORT
     Dosage: UNK
  10. CELESTAMINE TAB [Concomitant]
     Indication: BLOOD CHOLESTEROL INCREASED
     Dosage: UNK

REACTIONS (2)
  - TRANSIENT ISCHAEMIC ATTACK [None]
  - ANXIETY [None]
